FAERS Safety Report 5805897-6 (Version None)
Quarter: 2008Q3

REPORT INFORMATION
  Report Type: 
  Country: None (occurrence: None)
  Receive Date: 20080708
  Receipt Date: 20080624
  Transmission Date: 20090109
  Serious: Yes (Other)
  Sender: FDA-Public Use
  Company Number: PAR_02242_2008

PATIENT
  Age: 45 Year
  Sex: Female

DRUGS (4)
  1. IMIPRAMINE HYDROCHLORIDE [Suspect]
     Indication: DEPRESSION
     Dosage: (150 MG ORAL), (100 MG ORAL), (50 MG ORAL)
     Route: 048
     Dates: start: 20030101, end: 20080501
  2. IMIPRAMINE HYDROCHLORIDE [Suspect]
     Indication: DEPRESSION
     Dosage: (150 MG ORAL), (100 MG ORAL), (50 MG ORAL)
     Route: 048
     Dates: start: 20080101, end: 20080610
  3. IMIPRAMINE HYDROCHLORIDE [Suspect]
     Indication: DEPRESSION
     Dosage: (150 MG ORAL), (100 MG ORAL), (50 MG ORAL)
     Route: 048
     Dates: start: 20080501
  4. KLONOPIN [Concomitant]

REACTIONS (15)
  - AFFECT LABILITY [None]
  - DIARRHOEA [None]
  - DIZZINESS [None]
  - DRUG INEFFECTIVE [None]
  - DRUG WITHDRAWAL SYNDROME [None]
  - DYSPEPSIA [None]
  - FATIGUE [None]
  - HEADACHE [None]
  - INSOMNIA [None]
  - MUSCLE SPASMS [None]
  - NAUSEA [None]
  - RESTLESS LEGS SYNDROME [None]
  - TEARFULNESS [None]
  - TREMOR [None]
  - WEIGHT INCREASED [None]
